FAERS Safety Report 12305857 (Version 2)
Quarter: 2016Q2

REPORT INFORMATION
  Report Type: Report from Study
  Country: US (occurrence: US)
  Receive Date: 20160426
  Receipt Date: 20160510
  Transmission Date: 20160815
  Serious: Yes (Hospitalization)
  Sender: FDA-Public Use
  Company Number: US-GILEAD-2016-0210151

PATIENT
  Age: 70 Year
  Sex: Female

DRUGS (2)
  1. AMBRISENTAN [Suspect]
     Active Substance: AMBRISENTAN
     Indication: PULMONARY HYPERTENSION
     Dosage: 5 MG, UNK
     Route: 065
     Dates: start: 20110902
  2. AMBRISENTAN [Suspect]
     Active Substance: AMBRISENTAN
     Indication: OSTEOARTHRITIS

REACTIONS (2)
  - Fall [Unknown]
  - Joint injury [Unknown]
